FAERS Safety Report 16976597 (Version 1)
Quarter: 2019Q4

REPORT INFORMATION
  Report Type: Spontaneous
  Country: US (occurrence: US)
  Receive Date: 20190914
  Receipt Date: 20190914
  Transmission Date: 20200122
  Serious: Yes (Hospitalization)
  Sender: FDA-Public Use
  Company Number: None

PATIENT
  Age: 57 Year
  Sex: Male

DRUGS (1)
  1. VOTRIENT [Suspect]
     Active Substance: PAZOPANIB HYDROCHLORIDE
     Indication: RENAL CANCER
     Route: 048
     Dates: start: 20190409

REACTIONS (5)
  - Therapy cessation [None]
  - Pain [None]
  - Decreased appetite [None]
  - Cholecystectomy [None]
  - Malaise [None]

NARRATIVE: CASE EVENT DATE: 2019
